FAERS Safety Report 8358793-7 (Version None)
Quarter: 2012Q2

REPORT INFORMATION
  Report Type: 
  Country: None (occurrence: None)
  Receive Date: 20120514
  Receipt Date: 20090507
  Transmission Date: 20120825
  Serious: Yes (Death)
  Sender: FDA-Public Use
  Company Number: PHEH2009US019101

PATIENT
  Sex: Male

DRUGS (3)
  1. VALCYTE [Concomitant]
  2. RAPAMUNE [Concomitant]
  3. MYFORTIC [Suspect]
     Indication: LUPUS NEPHRITIS
     Dosage: 720 MG, BID
     Route: 048
     Dates: start: 20081210, end: 20090403

REACTIONS (1)
  - DEATH [None]
